FAERS Safety Report 25483146 (Version 2)
Quarter: 2025Q3

REPORT INFORMATION
  Report Type: Spontaneous
  Country: AU (occurrence: AU)
  Receive Date: 20250626
  Receipt Date: 20250710
  Transmission Date: 20251020
  Serious: Yes (Hospitalization, Other)
  Sender: ORGANON
  Company Number: None

PATIENT
  Age: 62 Year
  Sex: Male

DRUGS (3)
  1. MIRTAZAPINE [Suspect]
     Active Substance: MIRTAZAPINE
     Indication: Depression
     Dosage: 15 MILLIGRAM, QD
     Route: 048
     Dates: start: 202501, end: 202501
  2. MIRTAZAPINE [Suspect]
     Active Substance: MIRTAZAPINE
     Indication: Circadian rhythm sleep disorder
  3. MIRTAZAPINE [Suspect]
     Active Substance: MIRTAZAPINE
     Indication: Anxiety

REACTIONS (15)
  - Erectile dysfunction [Unknown]
  - Suicidal ideation [Recovering/Resolving]
  - Mental impairment [Unknown]
  - Psychotic disorder [Recovering/Resolving]
  - Ageusia [Unknown]
  - Anger [Recovering/Resolving]
  - Anosmia [Unknown]
  - Brain fog [Unknown]
  - Grief reaction [Recovering/Resolving]
  - Homicidal ideation [Recovering/Resolving]
  - Hypersomnia [Unknown]
  - Insomnia [Unknown]
  - Poor personal hygiene [Unknown]
  - Pruritus [Recovered/Resolved]
  - Skin tightness [Unknown]

NARRATIVE: CASE EVENT DATE: 20250101
